FAERS Safety Report 13158478 (Version 1)
Quarter: 2017Q1

REPORT INFORMATION
  Report Type: Spontaneous
  Country: BR (occurrence: BR)
  Receive Date: 20170127
  Receipt Date: 20170127
  Transmission Date: 20170428
  Serious: Yes (Disabling, Other)
  Sender: FDA-Public Use
  Company Number: BR-NOVOPROD-528324

PATIENT
  Sex: Male

DRUGS (2)
  1. NOVOLIN N [Suspect]
     Active Substance: INSULIN HUMAN
     Indication: DIABETES MELLITUS
     Dosage: 40 IU, QD (24 IU IN THE MORNING AND 16 IU AT NIGHT)
     Route: 065
  2. NOVOLIN R [Suspect]
     Active Substance: INSULIN HUMAN
     Indication: DIABETES MELLITUS
     Dosage: ACCORDING TO GLYCAEMIA
     Route: 065

REACTIONS (2)
  - Injection site induration [Not Recovered/Not Resolved]
  - Visual acuity reduced [Not Recovered/Not Resolved]
